FAERS Safety Report 6140790-3 (Version None)
Quarter: 2009Q2

REPORT INFORMATION
  Report Type: 
  Country: None (occurrence: None)
  Receive Date: 20090402
  Receipt Date: 20090324
  Transmission Date: 20091009
  Serious: Yes (Death)
  Sender: FDA-Public Use
  Company Number: JP-PFIZER INC-2009188581

PATIENT

DRUGS (2)
  1. ZYVOX [Suspect]
     Dosage: FREQUENCY: 2X/DAY,
     Route: 042
     Dates: start: 20090319, end: 20090322
  2. EPOGIN [Concomitant]
     Route: 042

REACTIONS (1)
  - DEATH [None]
